FAERS Safety Report 5475005-2 (Version None)
Quarter: 2007Q4

REPORT INFORMATION
  Report Type: 
  Country: None (occurrence: None)
  Receive Date: 20071002
  Receipt Date: 20070924
  Transmission Date: 20080405
  Serious: Yes (Death, Life-Threatening, Hospitalization, Other)
  Sender: FDA-Public Use
  Company Number: DE-BRISTOL-MYERS SQUIBB COMPANY-13922885

PATIENT
  Age: 53 Year
  Sex: Male

DRUGS (7)
  1. ERBITUX [Suspect]
     Indication: LIP AND/OR ORAL CAVITY CANCER
     Route: 042
     Dates: start: 20070727, end: 20070817
  2. RADIATION THERAPY [Suspect]
     Indication: LIP AND/OR ORAL CAVITY CANCER
     Dates: start: 20070806, end: 20070817
  3. DICLOFENAC SODIUM [Concomitant]
     Dates: end: 20070818
  4. NOVAMINSULFON [Concomitant]
  5. METOPROLOL [Concomitant]
     Dates: end: 20070820
  6. PANTOPRAZOLE SODIUM [Concomitant]
     Dates: end: 20070820
  7. CANDESARTAN CILEXETIL [Concomitant]
     Dosage: DOSAGE: 16MG,12.5MG
     Dates: end: 20070818

REACTIONS (1)
  - TUMOUR LYSIS SYNDROME [None]
